FAERS Safety Report 5703023-5 (Version None)
Quarter: 2008Q2

REPORT INFORMATION
  Report Type: 
  Country: None (occurrence: None)
  Receive Date: 20080408
  Receipt Date: 20080331
  Transmission Date: 20081010
  Serious: Yes (Other)
  Sender: FDA-Public Use
  Company Number: 2008SP006230

PATIENT
  Age: 58 Year
  Sex: Female

DRUGS (2)
  1. DIPROPHOS (BETAMETHASONE SODIUM PHOSPHATE/DIPROPIONATE) (BETAMETHASONE [Suspect]
     Indication: DUPUYTREN'S CONTRACTURE
     Dosage: 1; IA
     Route: 014
     Dates: start: 20050812
  2. DIPROPHOS (BETAMETHASONE SODIUM PHOSPHATE/DIPROPIONATE) (BETAMETHASONE [Suspect]
     Indication: DUPUYTREN'S CONTRACTURE
     Dosage: 1; IA
     Route: 014
     Dates: start: 20070830

REACTIONS (1)
  - DERMATITIS ALLERGIC [None]
